FAERS Safety Report 8187295-6 (Version None)
Quarter: 2012Q1

REPORT INFORMATION
  Report Type: 
  Country: None (occurrence: None)
  Receive Date: 20120302
  Receipt Date: 20120218
  Transmission Date: 20120608
  Serious: Yes (Other)
  Sender: FDA-Public Use
  Company Number: 2012AP000445

PATIENT
  Age: 51 Year
  Sex: Male

DRUGS (4)
  1. GABAPENTIN [Suspect]
     Indication: NEURALGIA
  2. BORTEZOMIB [Concomitant]
  3. DULOXETIME HYDROCHLORIDE [Suspect]
     Indication: NEURALGIA
     Dosage: 30 MG
  4. NORTRIPTYLINE HCL [Suspect]
     Indication: NEURALGIA
     Dosage: 50 MG;HS

REACTIONS (9)
  - AGITATION [None]
  - CONFUSIONAL STATE [None]
  - TREMOR [None]
  - RESTLESSNESS [None]
  - DIZZINESS [None]
  - DYSPNOEA [None]
  - NAUSEA [None]
  - ORTHOSTATIC INTOLERANCE [None]
  - HYPERHIDROSIS [None]
